FAERS Safety Report 5815533-0 (Version None)
Quarter: 2008Q3

REPORT INFORMATION
  Report Type: 
  Country: None (occurrence: None)
  Receive Date: 20080716
  Receipt Date: 20080703
  Transmission Date: 20090109
  Serious: Yes (Death)
  Sender: FDA-Public Use
  Company Number: 2008001587

PATIENT
  Sex: Male

DRUGS (2)
  1. ERLOTINIB (ERLOTINIB) (TABLET) (ERLOTINIB) [Suspect]
     Indication: HEPATIC NEOPLASM MALIGNANT NON-RESECTABLE
     Dosage: (100 MG, QD), ORAL
     Route: 048
     Dates: start: 20080512
  2. BEVACIZUMAB (INJECTION FOR INFUSION) [Suspect]
     Dosage: (10 MG/KG, Q2W), INTRAVENOUS
     Route: 042
     Dates: start: 20080512

REACTIONS (2)
  - CONDITION AGGRAVATED [None]
  - HEPATIC CIRRHOSIS [None]
